FAERS Safety Report 20326925 (Version 1)
Quarter: 2022Q1

REPORT INFORMATION
  Report Type: Spontaneous
  Country: US (occurrence: US)
  Receive Date: 20220112
  Receipt Date: 20220112
  Transmission Date: 20220424
  Serious: No
  Sender: FDA-Public Use
  Company Number: US-CELGENE-USA-20220102284

PATIENT
  Sex: Female

DRUGS (5)
  1. REVLIMID [Suspect]
     Active Substance: LENALIDOMIDE
     Indication: Plasma cell myeloma
     Dosage: 10 MILLIGRAM
     Route: 048
     Dates: start: 202011
  2. Valtrex medroxyprogesterone acetate [Concomitant]
     Indication: Product used for unknown indication
     Route: 065
  3. Alprazolam Potassium acetate [Concomitant]
     Indication: Product used for unknown indication
     Route: 065
  4. Phosphorus Sodium bicarbonate [Concomitant]
     Indication: Product used for unknown indication
     Route: 065
  5. GABAPENTIN [Concomitant]
     Active Substance: GABAPENTIN
     Indication: Product used for unknown indication
     Route: 065

REACTIONS (3)
  - Laboratory test abnormal [Unknown]
  - Sinusitis [Unknown]
  - Infection [Recovered/Resolved]
